FAERS Safety Report 13432046 (Version 1)
Quarter: 2017Q2

REPORT INFORMATION
  Report Type: Spontaneous
  Country: US (occurrence: US)
  Receive Date: 20170412
  Receipt Date: 20170412
  Transmission Date: 20170830
  Serious: No
  Sender: FDA-Public Use
  Company Number: US-JNJFOC-20170311699

PATIENT
  Age: 72 Year
  Sex: Female
  Weight: 55.34 kg

DRUGS (2)
  1. XARELTO [Suspect]
     Active Substance: RIVAROXABAN
     Indication: CEREBROVASCULAR ACCIDENT PROPHYLAXIS
     Dosage: ONCE IN MORNING WITH FOOD
     Route: 048
     Dates: start: 201701
  2. XARELTO [Suspect]
     Active Substance: RIVAROXABAN
     Indication: ATRIAL FIBRILLATION
     Dosage: ONCE IN MORNING WITH FOOD
     Route: 048
     Dates: start: 201701

REACTIONS (3)
  - Fall [Recovered/Resolved]
  - Skin abrasion [Unknown]
  - Head injury [Unknown]

NARRATIVE: CASE EVENT DATE: 20170309
